FAERS Safety Report 4514699-2 (Version None)
Quarter: 2004Q4

REPORT INFORMATION
  Report Type: 
  Country: None (occurrence: None)
  Receive Date: 20041126
  Receipt Date: 20041119
  Transmission Date: 20050328
  Serious: Yes (Life-Threatening)
  Sender: FDA-Public Use
  Company Number: 2004SE06460

PATIENT
  Age: 91 Year
  Sex: Female

DRUGS (4)
  1. NEXIUM [Suspect]
     Indication: GASTROINTESTINAL HAEMORRHAGE
     Dosage: 40 MG QD PO
     Route: 048
     Dates: start: 20040729
  2. MODURETIC MITE ^MSD^ [Concomitant]
  3. METOPROLOL SUCCINATE [Concomitant]
  4. DIGITOXIN TAB [Concomitant]

REACTIONS (3)
  - MELAENA [None]
  - SUBCUTANEOUS HAEMATOMA [None]
  - THROMBOCYTOPENIA [None]
